FAERS Safety Report 10235163 (Version 2)
Quarter: 2014Q2

REPORT INFORMATION
  Report Type: Spontaneous
  Country: US (occurrence: None)
  Receive Date: 20140611
  Receipt Date: 20140627
  Transmission Date: 20141212
  Serious: Yes (Hospitalization)
  Sender: FDA-Public Use
  Company Number: 2014-US-007029

PATIENT
  Age: 68 Year
  Sex: Female

DRUGS (1)
  1. XYREM [Suspect]
     Indication: NARCOLEPSY
     Route: 048
     Dates: start: 200406, end: 2004

REACTIONS (8)
  - Hospitalisation [None]
  - Balance disorder [None]
  - Neuropathy peripheral [None]
  - Fibromyalgia [None]
  - Irritable bowel syndrome [None]
  - Hypoaesthesia [None]
  - Pain in extremity [None]
  - Drug dose omission [None]
